FAERS Safety Report 22386907 (Version 1)
Quarter: 2023Q2

REPORT INFORMATION
  Report Type: Spontaneous
  Country: US (occurrence: US)
  Receive Date: 20230531
  Receipt Date: 20230531
  Transmission Date: 20230722
  Serious: Yes (Other)
  Sender: FDA-Public Use
  Company Number: US-MLMSERVICE-20230515-4285591-2

PATIENT

DRUGS (7)
  1. TACROLIMUS [Suspect]
     Active Substance: TACROLIMUS
     Indication: Immunosuppressant drug therapy
     Dosage: UNK
     Route: 065
  2. TACROLIMUS [Suspect]
     Active Substance: TACROLIMUS
     Dosage: UNK (INCREASED DOSE; GOAL TROUGH 10-15)
     Route: 065
  3. PREDNISONE [Suspect]
     Active Substance: PREDNISONE
     Indication: Immunosuppressant drug therapy
     Dosage: UNK
     Route: 065
  4. PREDNISONE [Suspect]
     Active Substance: PREDNISONE
     Dosage: UNK (INCREASED DOSE)
     Route: 065
  5. PREDNISONE [Suspect]
     Active Substance: PREDNISONE
     Dosage: 100 MILLIGRAM
     Route: 065
  6. MILRINONE [Concomitant]
     Active Substance: MILRINONE
     Indication: Cardiomyopathy
     Dosage: UNK
     Route: 065
  7. MYCOPHENOLIC ACID [Concomitant]
     Active Substance: MYCOPHENOLIC ACID
     Indication: Immunosuppressant drug therapy
     Dosage: 1500 MILLIGRAM, BID
     Route: 065

REACTIONS (2)
  - Pulmonary mass [Recovering/Resolving]
  - Pneumonia cryptococcal [Recovering/Resolving]
